FAERS Safety Report 6745482-5 (Version None)
Quarter: 2010Q2

REPORT INFORMATION
  Report Type: 
  Country: None (occurrence: None)
  Receive Date: 20100528
  Receipt Date: 20100518
  Transmission Date: 20101027
  Serious: Yes (Other)
  Sender: FDA-Public Use
  Company Number: US-BAYER-201021586NA

PATIENT
  Age: 42 Year
  Sex: Female

DRUGS (4)
  1. BETASERON [Suspect]
     Indication: RELAPSING-REMITTING MULTIPLE SCLEROSIS
     Route: 058
     Dates: start: 20000701, end: 20040701
  2. BETASERON [Suspect]
     Dosage: TOTAL DAILY DOSE: 4 MIU
     Route: 058
     Dates: start: 20100406
  3. BETASERON [Suspect]
     Dosage: TOTAL DAILY DOSE: 6 MIU
     Route: 058
  4. LYRICA [Concomitant]
     Dosage: TOTAL DAILY DOSE: 50 MG

REACTIONS (10)
  - BONE PAIN [None]
  - INJECTION SITE EXFOLIATION [None]
  - INJECTION SITE PAIN [None]
  - INJECTION SITE URTICARIA [None]
  - INTERVERTEBRAL DISC PROTRUSION [None]
  - JOINT SWELLING [None]
  - KIDNEY INFECTION [None]
  - LOSS OF CONSCIOUSNESS [None]
  - MYALGIA [None]
  - POOR QUALITY SLEEP [None]
